FAERS Safety Report 8811566 (Version 3)
Quarter: 2012Q4

REPORT INFORMATION
  Report Type: 
  Country: US (occurrence: US)
  Receive Date: 20120927
  Receipt Date: 20121008
  Transmission Date: 20130627
  Serious: Yes (Life-Threatening, Hospitalization)
  Sender: FDA-Public Use
  Company Number: US-JNJFOC-20120910748

PATIENT
  Age: 66 Year
  Sex: Female
  Weight: 121.56 kg

DRUGS (10)
  1. XARELTO [Suspect]
     Indication: CEREBROVASCULAR ACCIDENT PROPHYLAXIS
     Dosage: total of 2 doses
     Route: 048
     Dates: start: 20111213, end: 20111214
  2. XARELTO [Suspect]
     Indication: ATRIAL FIBRILLATION
     Dosage: total of 2 doses
     Route: 048
     Dates: start: 20111213, end: 20111214
  3. LOVENOX [Concomitant]
     Indication: ANTICOAGULANT THERAPY
     Dosage: one dose on 12/11, 2 on 12/12, and 1 on 12/13 in the AM then stopped
     Dates: start: 20111211, end: 20111213
  4. LOSARTAN [Concomitant]
  5. OMEPRAZOLE [Concomitant]
  6. METOPROLOL [Concomitant]
  7. WELLBUTRIN [Concomitant]
  8. ASA [Concomitant]
     Dates: start: 20111211
  9. SYNTHROID [Concomitant]
  10. BUMEX [Concomitant]
     Dates: start: 20111212

REACTIONS (4)
  - Retroperitoneal haemorrhage [Recovered/Resolved]
  - Haematoma [Unknown]
  - Hypotension [Unknown]
  - Renal failure acute [Recovering/Resolving]
